FAERS Safety Report 21833338 (Version 1)
Quarter: 2023Q1

REPORT INFORMATION
  Report Type: Spontaneous
  Country: PT (occurrence: PT)
  Receive Date: 20230107
  Receipt Date: 20230107
  Transmission Date: 20230418
  Serious: Yes (Hospitalization)
  Sender: FDA-Public Use
  Company Number: PT-TOWA-202204432

PATIENT
  Age: 53 Year
  Sex: Female

DRUGS (1)
  1. ALPRAZOLAM [Suspect]
     Active Substance: ALPRAZOLAM
     Indication: Product used for unknown indication
     Dosage: 20 TABLETS OF ALPRAZOLAM 0.25MG (TOTAL DOSE 5 MG)
     Route: 065

REACTIONS (2)
  - Hypertension [Recovered/Resolved]
  - Intentional overdose [Recovered/Resolved]
